FAERS Safety Report 9425217 (Version 2)
Quarter: 2013Q3

REPORT INFORMATION
  Report Type: Spontaneous
  Country: ZA (occurrence: ZA)
  Receive Date: 20130729
  Receipt Date: 20130830
  Transmission Date: 20140515
  Serious: Yes (Other)
  Sender: FDA-Public Use
  Company Number: ZA-PFIZER INC-2013214906

PATIENT
  Age: 35 Year
  Sex: Female
  Weight: 67 kg

DRUGS (3)
  1. CRIZOTINIB [Suspect]
     Indication: LUNG ADENOCARCINOMA
     Dosage: 250 MG, 2X/DAY (BD)
     Route: 048
     Dates: start: 20130204
  2. DIFLUCAN [Concomitant]
     Indication: INFECTION
     Dosage: 200 MG, 1X/DAY
     Route: 048
     Dates: start: 20130722, end: 20130801
  3. MYCOSTATIN [Concomitant]
     Indication: INFECTION
     Dosage: 2 ML, 4X/DAY (QID)
     Route: 048
     Dates: start: 20130722, end: 20130801

REACTIONS (1)
  - Fungal oesophagitis [Recovered/Resolved]
